FAERS Safety Report 16894407 (Version 1)
Quarter: 2019Q4

REPORT INFORMATION
  Report Type: Spontaneous
  Country: US (occurrence: US)
  Receive Date: 20191008
  Receipt Date: 20191008
  Transmission Date: 20200122
  Serious: No
  Sender: FDA-Public Use
  Company Number: US-INDIVIOR US-INDV-113948-2018

PATIENT
  Sex: Female

DRUGS (5)
  1. ACYCLOVIR                          /00587301/ [Concomitant]
     Active Substance: ACYCLOVIR
     Indication: HEPATITIS C
     Dosage: UNK, DAILY
     Route: 065
  2. SUBOXONE [Suspect]
     Active Substance: BUPRENORPHINE HYDROCHLORIDE\NALOXONE HYDROCHLORIDE
     Dosage: 8 MG, QD
     Route: 060
     Dates: start: 2018
  3. CITRULLINE [Concomitant]
     Active Substance: CITRULLINE
     Indication: PRODUCT USED FOR UNKNOWN INDICATION
     Dosage: UNK
     Route: 065
     Dates: start: 201803
  4. SUBOXONE [Suspect]
     Active Substance: BUPRENORPHINE HYDROCHLORIDE\NALOXONE HYDROCHLORIDE
     Indication: DRUG DEPENDENCE
     Dosage: 8 MG, QD
     Route: 060
     Dates: start: 201602
  5. SUBOXONE [Suspect]
     Active Substance: BUPRENORPHINE HYDROCHLORIDE\NALOXONE HYDROCHLORIDE
     Indication: PAIN
     Dosage: 8 MG, QD
     Route: 002
     Dates: start: 2018, end: 2018

REACTIONS (11)
  - Stomatitis [Not Recovered/Not Resolved]
  - Hyperaesthesia teeth [Not Recovered/Not Resolved]
  - Glossodynia [Not Recovered/Not Resolved]
  - Swollen tongue [Not Recovered/Not Resolved]
  - Feeding disorder [Not Recovered/Not Resolved]
  - Tongue exfoliation [Not Recovered/Not Resolved]
  - Oral mucosal exfoliation [Not Recovered/Not Resolved]
  - Dental caries [Not Recovered/Not Resolved]
  - Tongue discomfort [Not Recovered/Not Resolved]
  - Toothache [Not Recovered/Not Resolved]
  - Oral discomfort [Not Recovered/Not Resolved]

NARRATIVE: CASE EVENT DATE: 2018
